FAERS Safety Report 25399877 (Version 1)
Quarter: 2025Q2

REPORT INFORMATION
  Report Type: Spontaneous
  Country: BR (occurrence: BR)
  Receive Date: 20250605
  Receipt Date: 20250605
  Transmission Date: 20250717
  Serious: Yes (Death, Hospitalization, Other)
  Sender: SANOFI AVENTIS
  Company Number: BR-SA-2025SA156712

PATIENT
  Age: 1 Year
  Sex: Male

DRUGS (1)
  1. THYMOGLOBULINE [Suspect]
     Active Substance: LAPINE T-LYMPHOCYTE IMMUNE GLOBULIN
     Indication: Bone marrow conditioning regimen

REACTIONS (5)
  - Cardio-respiratory arrest [Fatal]
  - Crying [Unknown]
  - Discomfort [Unknown]
  - Screaming [Unknown]
  - Pain [Unknown]

NARRATIVE: CASE EVENT DATE: 20180101
